FAERS Safety Report 11637016 (Version 3)
Quarter: 2015Q4

REPORT INFORMATION
  Report Type: Report from Study
  Country: ES (occurrence: ES)
  Receive Date: 20151016
  Receipt Date: 20151221
  Transmission Date: 20160304
  Serious: Yes (Death, Hospitalization)
  Sender: FDA-Public Use
  Company Number: ES-JNJFOC-20151010276

PATIENT
  Age: 62 Year
  Sex: Male
  Weight: 93.1 kg

DRUGS (3)
  1. ABIRATERONE [Suspect]
     Active Substance: ABIRATERONE
     Indication: PROSTATE CANCER METASTATIC
     Route: 048
     Dates: start: 20150423, end: 20151009
  2. PREDNISONE. [Suspect]
     Active Substance: PREDNISONE
     Indication: PROSTATE CANCER METASTATIC
     Route: 048
     Dates: start: 20150423, end: 20151009
  3. DOCETAXEL. [Suspect]
     Active Substance: DOCETAXEL
     Indication: PROSTATE CANCER METASTATIC
     Dosage: 10 DAY 1 CYCLE
     Route: 042
     Dates: start: 20150316

REACTIONS (3)
  - Febrile neutropenia [Fatal]
  - Sepsis [Fatal]
  - Cardiovascular disorder [Fatal]

NARRATIVE: CASE EVENT DATE: 20151009
